FAERS Safety Report 5475902-8 (Version None)
Quarter: 2007Q4

REPORT INFORMATION
  Report Type: 
  Country: None (occurrence: None)
  Receive Date: 20071003
  Receipt Date: 20070919
  Transmission Date: 20080405
  Serious: No
  Sender: FDA-Public Use
  Company Number: DE-ELI_LILLY_AND_COMPANY-DE200709004337

PATIENT
  Sex: Female
  Weight: 43 kg

DRUGS (3)
  1. OLANZAPINE [Suspect]
     Dosage: UNK, UNKNOWN
     Route: 030
     Dates: start: 20051228, end: 20051228
  2. OLANZAPINE [Suspect]
     Dosage: 30 MG, DAILY (1/D)
     Route: 048
     Dates: start: 20051201
  3. OLANZAPINE [Suspect]
     Dosage: 12 MG, DAILY (1/D)
     Route: 048

REACTIONS (13)
  - CONJUNCTIVITIS [None]
  - DISSOCIATION [None]
  - DIZZINESS [None]
  - DYSAESTHESIA [None]
  - DYSPNOEA [None]
  - INJECTION SITE HAEMORRHAGE [None]
  - NAUSEA [None]
  - OVERDOSE [None]
  - PAIN [None]
  - RASH [None]
  - SYNCOPE [None]
  - VOMITING [None]
  - WEIGHT DECREASED [None]
